FAERS Safety Report 8801211 (Version 2)
Quarter: 2013Q1

REPORT INFORMATION
  Report Type: Report from Study
  Country: US (occurrence: US)
  Receive Date: 20120921
  Receipt Date: 20130211
  Transmission Date: 20140127
  Serious: Yes (Death, Other)
  Sender: FDA-Public Use
  Company Number: US-ROCHE-1131764

PATIENT
  Age: 55 Year
  Sex: Male
  Weight: 92.16 kg

DRUGS (1)
  1. CAPECITABINE [Suspect]
     Indication: COLORECTAL CANCER METASTATIC
     Route: 048
     Dates: start: 20120910

REACTIONS (7)
  - Death [Fatal]
  - Back pain [Not Recovered/Not Resolved]
  - Candida infection [Unknown]
  - Pruritus [Not Recovered/Not Resolved]
  - Bladder pain [Not Recovered/Not Resolved]
  - Haematochezia [Not Recovered/Not Resolved]
  - Colostomy [Not Recovered/Not Resolved]
